FAERS Safety Report 16621457 (Version 4)
Quarter: 2019Q4

REPORT INFORMATION
  Report Type: Report from Study
  Country: BR (occurrence: BR)
  Receive Date: 20190723
  Receipt Date: 20191223
  Transmission Date: 20200122
  Serious: Yes (Life-Threatening, Other)
  Sender: FDA-Public Use
  Company Number: PHHY2019BR114964

PATIENT
  Age: 52 Year
  Sex: Female

DRUGS (3)
  1. COSENTYX [Suspect]
     Active Substance: SECUKINUMAB
     Indication: ANKYLOSING SPONDYLITIS
     Dosage: UNK
     Route: 065
     Dates: start: 20181102
  2. COSENTYX [Suspect]
     Active Substance: SECUKINUMAB
     Dosage: UNK
     Route: 065
     Dates: start: 20190510, end: 201905
  3. COSENTYX [Suspect]
     Active Substance: SECUKINUMAB
     Dosage: UNK
     Route: 065

REACTIONS (15)
  - Uveitis [Unknown]
  - Inflammation [Unknown]
  - Calculus urinary [Recovering/Resolving]
  - Tooth infection [Not Recovered/Not Resolved]
  - Oral discharge [Unknown]
  - Pneumonia [Unknown]
  - Urinary tract infection [Unknown]
  - Blood urine present [Recovering/Resolving]
  - Infection [Unknown]
  - Near death experience [Recovering/Resolving]
  - Concomitant disease aggravated [Unknown]
  - Ankylosing spondylitis [Unknown]
  - Renal colic [Recovering/Resolving]
  - Pulpitis dental [Unknown]
  - Malaise [Unknown]

NARRATIVE: CASE EVENT DATE: 20190418
